FAERS Safety Report 9294019 (Version 3)
Quarter: 2013Q4

REPORT INFORMATION
  Report Type: Spontaneous
  Country: US (occurrence: None)
  Receive Date: 20121227
  Receipt Date: 20131226
  Transmission Date: 20140711
  Serious: Yes (Other)
  Sender: FDA-Public Use
  Company Number: PHEH2012US012047

PATIENT
  Age: 52 Year
  Sex: Female
  Weight: 56.7 kg

DRUGS (1)
  1. GILENYA [Suspect]
     Indication: MULTIPLE SCLEROSIS
     Dosage: 500 MG, DAILY BEFORE A MEAL, ORAL
     Route: 048
     Dates: start: 20110203

REACTIONS (18)
  - Sickle cell anaemia with crisis [None]
  - Monocyte count increased [None]
  - Lymphocyte count decreased [None]
  - White blood cell count increased [None]
  - Neutrophilia [None]
  - Neutrophil count decreased [None]
  - Platelet count increased [None]
  - Nausea [None]
  - Red blood cell count decreased [None]
  - Haematocrit decreased [None]
  - Mean cell volume decreased [None]
  - Red cell distribution width increased [None]
  - Anaemia [None]
  - Haemoglobin decreased [None]
  - Dizziness [None]
  - Asthenia [None]
  - Hyperhidrosis [None]
  - Depression [None]
